FAERS Safety Report 10400790 (Version 1)
Quarter: 2014Q3

REPORT INFORMATION
  Report Type: Spontaneous
  Country: US (occurrence: US)
  Receive Date: 20140821
  Receipt Date: 20140821
  Transmission Date: 20150326
  Serious: No
  Sender: FDA-Public Use
  Company Number: US-ASTRAZENECA-2014SE22763

PATIENT
  Age: 58 Year
  Sex: Female
  Weight: 86.2 kg

DRUGS (5)
  1. SINGULAIR [Concomitant]
     Active Substance: MONTELUKAST SODIUM
  2. ALBUTEROL. [Concomitant]
     Active Substance: ALBUTEROL
  3. SYMBICORT [Suspect]
     Active Substance: BUDESONIDE\FORMOTEROL FUMARATE DIHYDRATE
     Indication: DYSPNOEA
     Dosage: 2 PUFFS BID
     Route: 055
     Dates: end: 20140130
  4. NEBULIZER [Concomitant]
     Active Substance: UNSPECIFIED INGREDIENT
  5. ZYRTEC OTC [Concomitant]

REACTIONS (6)
  - Intentional product misuse [Unknown]
  - Drug dose omission [Unknown]
  - Productive cough [Unknown]
  - Wheezing [Not Recovered/Not Resolved]
  - Off label use [Unknown]
  - Bronchitis [Unknown]

NARRATIVE: CASE EVENT DATE: 201306
